FAERS Safety Report 8015282-7 (Version None)
Quarter: 2011Q4

REPORT INFORMATION
  Report Type: 
  Country: None (occurrence: None)
  Receive Date: 20111230
  Receipt Date: 20111222
  Transmission Date: 20120403
  Serious: Yes (Death)
  Sender: FDA-Public Use
  Company Number: US-SHIRE-ALL1-2011-04500

PATIENT
  Age: 50 Year
  Sex: Male

DRUGS (1)
  1. CARBATROL [Suspect]
     Indication: PRODUCT USED FOR UNKNOWN INDICATION
     Dosage: UNK, OTHER (7 UNKNOWN MG CAPSULES , UNKNOWN FREQUENCY,DAILY)
     Route: 048
     Dates: start: 20081101, end: 20111016

REACTIONS (1)
  - BRAIN NEOPLASM [None]
